FAERS Safety Report 4885827-4 (Version None)
Quarter: 2006Q1

REPORT INFORMATION
  Report Type: 
  Country: None (occurrence: None)
  Receive Date: 20060117
  Receipt Date: 20060103
  Transmission Date: 20060701
  Serious: Yes (Death, Other)
  Sender: FDA-Public Use
  Company Number: 2006003943

PATIENT
  Age: 45 Year
  Sex: Female

DRUGS (1)
  1. SOMATROPIN (SOMATROPIN) [Suspect]
     Indication: ILL-DEFINED DISORDER

REACTIONS (4)
  - ACUTE PULMONARY OEDEMA [None]
  - GERM CELL CANCER [None]
  - RECURRENT CANCER [None]
  - TACHYARRHYTHMIA [None]
